FAERS Safety Report 15416315 (Version 2)
Quarter: 2018Q4

REPORT INFORMATION
  Report Type: Report from Study
  Country: NL (occurrence: NL)
  Receive Date: 20180924
  Receipt Date: 20181010
  Transmission Date: 20190204
  Serious: Yes (Death, Hospitalization, Other)
  Sender: FDA-Public Use
  Company Number: NL-BRISTOL-MYERS SQUIBB COMPANY-BMS-2018-087588

PATIENT
  Age: 70 Year
  Sex: Female

DRUGS (2)
  1. NIVOLUMAB [Suspect]
     Active Substance: NIVOLUMAB
     Indication: NON-SMALL CELL LUNG CANCER
     Dosage: FIRST CYCLE
     Route: 065
     Dates: start: 20170412
  2. BMS-986192-01 [Suspect]
     Active Substance: INVESTIGATIONAL PRODUCT
     Indication: NON-SMALL CELL LUNG CANCER
     Dosage: TRACER DOSE
     Route: 065
     Dates: start: 20170411

REACTIONS (4)
  - Malignant neoplasm progression [Fatal]
  - Tumour compression [Unknown]
  - Dyspnoea [Unknown]
  - Respiratory failure [Unknown]
